FAERS Safety Report 6700974-X (Version None)
Quarter: 2010Q2

REPORT INFORMATION
  Report Type: 
  Country: None (occurrence: None)
  Receive Date: 20100428
  Receipt Date: 20100420
  Transmission Date: 20101027
  Serious: Yes (Hospitalization)
  Sender: FDA-Public Use
  Company Number: US-GENENTECH-300819

PATIENT
  Sex: Male
  Weight: 72.562 kg

DRUGS (2)
  1. RANIBIZUMAB [Suspect]
     Indication: DIABETIC RETINOPATHY
     Dosage: 0.5 MG, UNK
     Route: 031
     Dates: start: 20080303, end: 20081203
  2. RANIBIZUMAB [Suspect]
     Indication: IRIS NEOVASCULARISATION

REACTIONS (1)
  - OSTEOMYELITIS [None]
